FAERS Safety Report 5366772-7 (Version None)
Quarter: 2007Q2

REPORT INFORMATION
  Report Type: 
  Country: None (occurrence: None)
  Receive Date: 20070622
  Receipt Date: 20060928
  Transmission Date: 20071010
  Serious: No
  Sender: FDA-Public Use
  Company Number: US-ASTRAZENECA-2006UW19022

PATIENT
  Age: 27156 Day
  Sex: Female
  Weight: 73.5 kg

DRUGS (14)
  1. RHINOCORT [Suspect]
     Indication: NASAL DISORDER
     Route: 045
     Dates: start: 20060908
  2. ASPIRIN [Concomitant]
  3. EVISTA [Concomitant]
  4. NEXIUM [Concomitant]
     Route: 048
  5. GABAPENTIN [Concomitant]
  6. OYST-CAL-D [Concomitant]
  7. IMDUR [Concomitant]
  8. ALDACTONE [Concomitant]
  9. XANAX [Concomitant]
  10. DOCUSATE [Concomitant]
  11. PROPYLTHIOURACIL [Concomitant]
  12. NITRO QUICK [Concomitant]
  13. DIOVAN-NOVART [Concomitant]
  14. MICRONASE [Concomitant]

REACTIONS (4)
  - BLOOD GLUCOSE INCREASED [None]
  - HEART RATE INCREASED [None]
  - PHARYNGOLARYNGEAL PAIN [None]
  - RESPIRATORY DISORDER [None]
